FAERS Safety Report 6705230-1 (Version None)
Quarter: 2010Q2

REPORT INFORMATION
  Report Type: 
  Country: None (occurrence: None)
  Receive Date: 20100430
  Receipt Date: 20090922
  Transmission Date: 20101027
  Serious: No
  Sender: FDA-Public Use
  Company Number: US-ASTRAZENECA-2009SE14680

PATIENT
  Age: 50 Year
  Sex: Female
  Weight: 54.4 kg

DRUGS (1)
  1. NEXIUM IV [Suspect]
     Route: 042
     Dates: start: 20090922

REACTIONS (1)
  - INFUSION SITE EXTRAVASATION [None]
